FAERS Safety Report 20729484 (Version 3)
Quarter: 2022Q3

REPORT INFORMATION
  Report Type: Report from Study
  Country: GB (occurrence: GB)
  Receive Date: 20220420
  Receipt Date: 20220629
  Transmission Date: 20221026
  Serious: Yes (Hospitalization)
  Sender: FDA-Public Use
  Company Number: GB-NOVARTISPH-NVSC2022GB056100

PATIENT
  Age: 61 Year
  Sex: Female

DRUGS (1)
  1. COSENTYX [Suspect]
     Active Substance: SECUKINUMAB
     Indication: Ankylosing spondylitis
     Dosage: 150 MG, QMO
     Route: 065

REACTIONS (8)
  - Kidney infection [Recovering/Resolving]
  - Sepsis [Recovering/Resolving]
  - COVID-19 [Recovering/Resolving]
  - Lower respiratory tract infection [Recovering/Resolving]
  - Eye infection [Recovering/Resolving]
  - Tonsillitis [Recovering/Resolving]
  - Colitis [Recovering/Resolving]
  - Musculoskeletal chest pain [Not Recovered/Not Resolved]

NARRATIVE: CASE EVENT DATE: 20220104
